FAERS Safety Report 7364971-6 (Version None)
Quarter: 2011Q1

REPORT INFORMATION
  Report Type: 
  Country: None (occurrence: None)
  Receive Date: 20110321
  Receipt Date: 20110309
  Transmission Date: 20110831
  Serious: Yes (Hospitalization)
  Sender: FDA-Public Use
  Company Number: CA-SANOFI-AVENTIS-2011SA015257

PATIENT
  Age: 86 Year
  Sex: Female
  Weight: 50 kg

DRUGS (1)
  1. PLAVIX [Suspect]
     Indication: STENT PLACEMENT
     Route: 048
     Dates: start: 20050101

REACTIONS (14)
  - BLOOD CREATININE INCREASED [None]
  - URINARY TRACT INFECTION [None]
  - OCULAR ICTERUS [None]
  - ARTHRALGIA [None]
  - SYNCOPE [None]
  - TOOTH LOSS [None]
  - DECREASED APPETITE [None]
  - DEMENTIA [None]
  - RENAL FAILURE [None]
  - CONTUSION [None]
  - RASH [None]
  - BONE DENSITY DECREASED [None]
  - MUSCULAR WEAKNESS [None]
  - CONFUSIONAL STATE [None]
